FAERS Safety Report 9163722 (Version 1)
Quarter: 2013Q1

REPORT INFORMATION
  Report Type: Spontaneous
  Country: US (occurrence: US)
  Receive Date: 20130314
  Receipt Date: 20130314
  Transmission Date: 20140127
  Serious: Yes (Hospitalization, Other)
  Sender: FDA-Public Use
  Company Number: US-009507513-1006USA03121

PATIENT
  Sex: Female
  Weight: 70.31 kg

DRUGS (10)
  1. FOSAMAX [Suspect]
     Indication: OSTEOPOROSIS
     Dosage: 70 MG, UNK
     Route: 048
     Dates: start: 2006, end: 20100306
  2. FOSAMAX [Suspect]
     Indication: HIP ARTHROPLASTY
  3. FOSAMAX [Suspect]
     Indication: OSTEOPOROSIS
     Route: 048
     Dates: start: 20081205
  4. FOSAMAX PLUS D [Suspect]
     Indication: OSTEOPOROSIS
     Dosage: 70MG/2800
     Route: 048
     Dates: start: 2006, end: 20081204
  5. COUMADIN [Concomitant]
     Route: 048
  6. VITAMIN D (UNSPECIFIED) [Concomitant]
     Dosage: 25 MG, QD
     Dates: start: 1994
  7. CALCIUM (UNSPECIFIED) [Concomitant]
     Dosage: 1500 MG, QD
     Dates: start: 1994
  8. TAMOXIFEN CITRATE [Concomitant]
     Dates: start: 2005
  9. PRINIVIL [Concomitant]
     Indication: BLOOD PRESSURE ABNORMAL
     Dates: start: 2005
  10. WARFARIN [Concomitant]
     Indication: THROMBOSIS
     Dosage: 3 MG, UNK
     Route: 048
     Dates: start: 2002

REACTIONS (57)
  - Femur fracture [Recovering/Resolving]
  - Low turnover osteopathy [Unknown]
  - Arthralgia [Unknown]
  - Femur fracture [Recovered/Resolved]
  - Arthropathy [Unknown]
  - Arthropathy [Unknown]
  - Treatment noncompliance [Unknown]
  - Hypertension [Unknown]
  - Iron deficiency anaemia [Unknown]
  - Fibrin D dimer increased [Unknown]
  - Local swelling [Not Recovered/Not Resolved]
  - Constipation [Unknown]
  - Paraesthesia [Unknown]
  - Colitis [Unknown]
  - Invasive ductal breast carcinoma [Unknown]
  - Postmenopause [Unknown]
  - Cyst [Unknown]
  - Stasis dermatitis [Unknown]
  - Skin ulcer [Recovering/Resolving]
  - Osteonecrosis [Unknown]
  - Cardiac valve disease [Unknown]
  - Subcutaneous haematoma [Recovering/Resolving]
  - Joint injury [Unknown]
  - Fall [Unknown]
  - Lymphoedema [Recovering/Resolving]
  - Fall [Unknown]
  - Joint injury [Unknown]
  - Gait disturbance [Unknown]
  - Rectal haemorrhage [Unknown]
  - Fall [Unknown]
  - Urinary tract infection [Unknown]
  - Local swelling [Unknown]
  - Local swelling [Unknown]
  - Arthropathy [Unknown]
  - Deep vein thrombosis [Not Recovered/Not Resolved]
  - Coagulopathy [Unknown]
  - Procedural hypotension [Unknown]
  - Haemorrhagic anaemia [Unknown]
  - Exfoliation glaucoma [Unknown]
  - Ocular hypertension [Unknown]
  - Ectropion [Unknown]
  - Glaucoma [Unknown]
  - Corneal oedema [Unknown]
  - Conjunctival granuloma [Unknown]
  - Blepharitis [Unknown]
  - Eyelid ptosis [Unknown]
  - Pain [Unknown]
  - Abdominal hernia [Unknown]
  - Insomnia [Unknown]
  - Presbyopia [Unknown]
  - Hypermetropia [Unknown]
  - Astigmatism [Unknown]
  - Oedema peripheral [Unknown]
  - Osteoarthritis [Unknown]
  - Open reduction of fracture [Unknown]
  - Transfusion [Unknown]
  - Breast lump removal [Unknown]
